FAERS Safety Report 19803129 (Version 1)
Quarter: 2021Q3

REPORT INFORMATION
  Report Type: Spontaneous
  Country: FR (occurrence: FR)
  Receive Date: 20210908
  Receipt Date: 20210908
  Transmission Date: 20211014
  Serious: Yes (Life-Threatening, Other)
  Sender: FDA-Public Use
  Company Number: FR-GLAXOSMITHKLINE-FR2021190494

PATIENT
  Age: 69 Year
  Sex: Female
  Weight: 61 kg

DRUGS (20)
  1. TAZOBACTAM [Suspect]
     Active Substance: TAZOBACTAM
     Indication: PSEUDOMONAS INFECTION
     Dosage: 4 G, TID
     Route: 041
     Dates: start: 20210617
  2. LANSOPRAZOLE. [Concomitant]
     Active Substance: LANSOPRAZOLE
     Indication: PRODUCT USED FOR UNKNOWN INDICATION
     Dosage: 15 MG
     Route: 048
  3. BISOPROLOL [Concomitant]
     Active Substance: BISOPROLOL
     Indication: TACHYCARDIA
     Dosage: 2.5 MG, QD
     Route: 048
  4. PACLITAXEL. [Suspect]
     Active Substance: PACLITAXEL
     Dosage: UNK
     Route: 041
     Dates: start: 20210611, end: 20210611
  5. AMLODIPINE [Concomitant]
     Active Substance: AMLODIPINE BESYLATE
     Indication: HYPERTENSION
     Dosage: 5 MG, BID
     Route: 048
  6. CARBOPLATINE [Suspect]
     Active Substance: CARBOPLATIN
     Indication: OVARIAN EPITHELIAL CANCER
     Dosage: UNK
     Route: 041
     Dates: start: 20210519, end: 20210519
  7. PACLITAXEL. [Suspect]
     Active Substance: PACLITAXEL
     Indication: OVARIAN EPITHELIAL CANCER
     Dosage: UNK
     Route: 041
     Dates: start: 20210519, end: 20210519
  8. VIMPAT [Suspect]
     Active Substance: LACOSAMIDE
     Indication: EPILEPSY
     Dosage: 100 MG, BID
     Route: 041
     Dates: start: 20210617
  9. TEGRETOL [Suspect]
     Active Substance: CARBAMAZEPINE
     Indication: STATUS EPILEPTICUS
     Dosage: 300 MG, BID
     Route: 048
     Dates: start: 20210625, end: 20210708
  10. ACICLOVIR [Suspect]
     Active Substance: ACYCLOVIR
     Indication: NERVOUS SYSTEM DISORDER
     Dosage: UNK
     Route: 041
  11. KEPPRA [Suspect]
     Active Substance: LEVETIRACETAM
     Indication: STATUS EPILEPTICUS
     Dosage: 500 MG, SINGLE
     Route: 041
     Dates: start: 20210623, end: 20210623
  12. DEPAKINE [Suspect]
     Active Substance: VALPROATE SODIUM
     Indication: STATUS EPILEPTICUS
     Dosage: 400 MG, (SINGLE)
     Route: 041
     Dates: start: 20210623, end: 20210623
  13. CARBOPLATINE [Suspect]
     Active Substance: CARBOPLATIN
     Dosage: UNK
     Route: 041
     Dates: start: 20210611, end: 20210611
  14. HYDROCHLOROTHIAZIDE. [Concomitant]
     Active Substance: HYDROCHLOROTHIAZIDE
     Indication: HYPERTENSION
     Dosage: 25 MG, QD
     Route: 048
  15. CANDESARTAN CILEXETIL. [Concomitant]
     Active Substance: CANDESARTAN CILEXETIL
     Indication: HYPERTENSION
     Dosage: 16 MG, QD
     Route: 048
  16. PIPERACILLINE [Suspect]
     Active Substance: PIPERACILLIN SODIUM
     Indication: PSEUDOMONAS INFECTION
     Dosage: UNK
     Route: 041
     Dates: start: 20210617, end: 20210707
  17. RIVOTRIL [Suspect]
     Active Substance: CLONAZEPAM
     Indication: STATUS EPILEPTICUS
     Dosage: 3 MG, (SINGLE)
     Route: 065
     Dates: start: 20210623, end: 20210623
  18. VENLAFAXINE [Suspect]
     Active Substance: VENLAFAXINE HYDROCHLORIDE
     Indication: DEPRESSION
     Dosage: 75 MG, QD
     Route: 048
  19. LEVOTHYROX [Concomitant]
     Active Substance: LEVOTHYROXINE
     Indication: HYPOTHYROIDISM
     Dosage: 125 ?G, QD
     Route: 041
  20. LOVENOX [Concomitant]
     Active Substance: ENOXAPARIN SODIUM
     Indication: ANTICOAGULANT THERAPY
     Dosage: 1 DF, QD
     Route: 058
     Dates: start: 20210624

REACTIONS (1)
  - Agranulocytosis [Recovered/Resolved]

NARRATIVE: CASE EVENT DATE: 20210707
